FAERS Safety Report 12091221 (Version 1)
Quarter: 2016Q1

REPORT INFORMATION
  Report Type: Spontaneous
  Country: NL (occurrence: NL)
  Receive Date: 20160218
  Receipt Date: 20160218
  Transmission Date: 20160526
  Serious: Yes (Other)
  Sender: FDA-Public Use
  Company Number: NL-IMPAX LABORATORIES, INC-2016-IPXL-00174

PATIENT
  Age: 7 Year
  Sex: Male

DRUGS (2)
  1. PHENYTOIN CHEWABLE [Suspect]
     Active Substance: PHENYTOIN
     Indication: EPILEPSY
  2. PHENYTOIN CHEWABLE [Suspect]
     Active Substance: PHENYTOIN
     Indication: SEIZURE
     Dosage: UNK
     Route: 065

REACTIONS (4)
  - Cognitive disorder [Recovering/Resolving]
  - Drug withdrawal convulsions [Unknown]
  - Cerebellar atrophy [Unknown]
  - Gingival hyperplasia [Unknown]
